FAERS Safety Report 7607098-8 (Version None)
Quarter: 2011Q3

REPORT INFORMATION
  Report Type: 
  Country: None (occurrence: None)
  Receive Date: 20110713
  Receipt Date: 20110630
  Transmission Date: 20111222
  Serious: Yes (Hospitalization)
  Sender: FDA-Public Use
  Company Number: JP-CELGENEUS-087-21880-11010933

PATIENT
  Sex: Female

DRUGS (30)
  1. MAGMITT [Concomitant]
     Dosage: 500 MILLIGRAM
     Route: 048
     Dates: start: 20090901
  2. MAGMITT [Concomitant]
     Dosage: 500 MILLIGRAM
     Route: 048
     Dates: start: 20101029, end: 20110203
  3. PREDNISOLONE [Concomitant]
     Dosage: 5 MILLIGRAM
     Route: 048
     Dates: start: 20101025, end: 20101202
  4. FAMOTIDINE [Concomitant]
     Dosage: 40 MILLIGRAM
     Route: 048
     Dates: start: 20101125, end: 20101202
  5. METHYCOBAL [Concomitant]
     Dosage: 1500 MICROGRAM
     Route: 051
     Dates: start: 20101117, end: 20101124
  6. INFLUENZA HA VACCINE [Concomitant]
     Indication: PROPHYLAXIS
     Dosage: .5 MILLILITER
     Route: 051
     Dates: start: 20101029, end: 20101029
  7. REVLIMID [Suspect]
     Dosage: 20 MILLIGRAM
     Route: 048
     Dates: start: 20110107, end: 20110127
  8. LOSARTAN POTASSIUM [Concomitant]
     Dosage: 500 MILLIGRAM
     Route: 048
     Dates: start: 20090801, end: 20101028
  9. ALFAROL [Concomitant]
     Indication: PROPHYLAXIS
     Dosage: .5 MILLIGRAM
     Route: 048
     Dates: start: 20090801, end: 20101028
  10. MAGMITT [Concomitant]
     Dosage: 500 MILLIGRAM
     Route: 048
     Dates: start: 20100903, end: 20101028
  11. AMLODIN OD [Concomitant]
     Dosage: 5 MILLIGRAM
     Route: 048
     Dates: start: 20091201, end: 20110203
  12. REVLIMID [Suspect]
     Dosage: 25 MILLIGRAM
     Route: 048
     Dates: start: 20101112, end: 20101202
  13. MAGMITT [Concomitant]
     Dosage: 750 MILLIGRAM
     Route: 048
     Dates: start: 20100820, end: 20100902
  14. REVLIMID [Suspect]
     Indication: MULTIPLE MYELOMA
     Dosage: 25 MILLIGRAM
     Route: 048
     Dates: start: 20100723, end: 20100812
  15. REVLIMID [Suspect]
     Dosage: 25 MILLIGRAM
     Route: 048
     Dates: start: 20101029, end: 20101104
  16. DEXAMETHASONE [Suspect]
     Dosage: 40 MILLIGRAM
     Route: 048
     Dates: start: 20100820, end: 20100823
  17. LANSOPRAZOLE-OD [Concomitant]
     Dosage: 30 MILLIGRAM
     Route: 048
     Dates: start: 20100401, end: 20110203
  18. FAMOTIDINE [Concomitant]
  19. ADENOSINE [Concomitant]
     Indication: PROPHYLAXIS
     Dosage: 120 MILLIGRAM
     Route: 048
     Dates: start: 20101125, end: 20110105
  20. ADETPHOS-L [Concomitant]
     Dosage: 10 MILLIGRAM
     Route: 051
     Dates: start: 20100101, end: 20101124
  21. PREDNISOLONE [Concomitant]
     Dosage: 30-80MG
     Route: 051
     Dates: start: 20101117, end: 20101123
  22. LOSARTAN POTASSIUM [Concomitant]
     Dosage: 50 MILLIGRAM
     Route: 048
     Dates: start: 20101029, end: 20110203
  23. ALFAROL [Concomitant]
     Dosage: .5 MILLIGRAM
     Route: 048
     Dates: start: 20101029, end: 20110203
  24. REVLIMID [Suspect]
     Dosage: 25 MILLIGRAM
     Route: 048
     Dates: start: 20100820, end: 20100909
  25. REVLIMID [Suspect]
     Dosage: 25 MILLIGRAM
     Route: 048
     Dates: start: 20100917, end: 20101007
  26. DEXAMETHASONE [Suspect]
     Indication: MULTIPLE MYELOMA
     Dosage: 40 MILLIGRAM
     Route: 048
     Dates: start: 20100723, end: 20100809
  27. DEXAMETHASONE [Suspect]
     Dosage: 40 MILLIGRAM
     Route: 048
     Dates: start: 20110107, end: 20110107
  28. MOBIC [Concomitant]
     Dosage: 10 MILLIGRAM
     Route: 048
     Dates: start: 20090801, end: 20100203
  29. AMLODIN OD [Concomitant]
     Dosage: 5 MILLIGRAM
     Route: 048
     Dates: start: 20091201, end: 20101210
  30. METHYCOBAL [Concomitant]
     Dosage: 1500 MICROGRAM
     Route: 048
     Dates: start: 20101202, end: 20110105

REACTIONS (5)
  - VIITH NERVE PARALYSIS [None]
  - NEUTROPHIL COUNT DECREASED [None]
  - PRURITUS [None]
  - NASOPHARYNGITIS [None]
  - PROTEIN TOTAL DECREASED [None]
